FAERS Safety Report 8882174 (Version 11)
Quarter: 2013Q3

REPORT INFORMATION
  Report Type: Spontaneous
  Country: US (occurrence: US)
  Receive Date: 20121102
  Receipt Date: 20130906
  Transmission Date: 20140515
  Serious: Yes (Hospitalization, Other)
  Sender: FDA-Public Use
  Company Number: US-MERCK-1210USA010166

PATIENT
  Sex: Female
  Weight: 99.77 kg

DRUGS (10)
  1. FOSAMAX [Suspect]
     Indication: OSTEOPENIA
     Dosage: 10 MG, UNK
     Route: 048
     Dates: start: 20000512, end: 20060926
  2. FOSAMAX [Suspect]
     Dosage: 70 MG, UNK
     Route: 048
     Dates: start: 2001, end: 20060926
  3. FOSAMAX PLUS D [Suspect]
     Indication: OSTEOPENIA
     Dosage: 70 MG / 2800 IU
     Route: 048
     Dates: start: 20070326, end: 20090205
  4. ALENDRONATE SODIUM [Suspect]
     Dosage: 70 MG, QW
     Route: 048
  5. ALENDRONATE SODIUM (+) CHOLECALCIFEROL [Suspect]
     Dosage: 70MG-2800, QW
     Route: 048
  6. CORTICOSTEROIDS (UNSPECIFIED) [Concomitant]
     Dosage: UNK
     Dates: start: 1979
  7. COZAAR [Concomitant]
     Indication: HYPERTENSION
     Dosage: UNK
     Route: 048
     Dates: start: 200411, end: 2011
  8. IMURAN (AZATHIOPRINE SODIUM) [Concomitant]
     Indication: RENAL TRANSPLANT
     Dosage: UNK
  9. ZEMPLAR [Concomitant]
     Indication: RENAL TRANSPLANT
     Dosage: UNK
  10. FUROSEMIDE [Concomitant]
     Dosage: UNK
     Dates: start: 1999, end: 2007

REACTIONS (74)
  - Internal fixation of fracture [Recovered/Resolved]
  - Wound infection staphylococcal [Unknown]
  - Vaginal cancer [Unknown]
  - Bowen^s disease [Unknown]
  - Enteritis infectious [Unknown]
  - Wound infection [Unknown]
  - Debridement [Unknown]
  - Surgery [Unknown]
  - Hernia repair [Unknown]
  - Upper limb fracture [Unknown]
  - Shoulder arthroplasty [Unknown]
  - Skin disorder [Recovered/Resolved]
  - Debridement [Unknown]
  - Haematoma [Unknown]
  - Debridement [Unknown]
  - Renal failure chronic [Not Recovered/Not Resolved]
  - Incisional drainage [Recovered/Resolved]
  - Post procedural infection [Recovered/Resolved]
  - Arthroscopy [Unknown]
  - Mammoplasty [Unknown]
  - Femur fracture [Recovered/Resolved]
  - Low turnover osteopathy [Unknown]
  - Foot fracture [Unknown]
  - Tooth disorder [Unknown]
  - Oral surgery [Unknown]
  - Tooth extraction [Unknown]
  - Hypercholesterolaemia [Unknown]
  - Depression [Unknown]
  - Pain [Unknown]
  - Fluid retention [Unknown]
  - Swelling [Not Recovered/Not Resolved]
  - Blood potassium decreased [Unknown]
  - Blood magnesium decreased [Unknown]
  - Pain [Not Recovered/Not Resolved]
  - Osteoarthritis [Unknown]
  - Osteoarthritis [Unknown]
  - Spinal osteoarthritis [Unknown]
  - Lumbar radiculopathy [Unknown]
  - Cataract operation [Unknown]
  - Bladder operation [Unknown]
  - Hysterectomy [Unknown]
  - Venous insufficiency [Unknown]
  - Foot operation [Unknown]
  - Rheumatoid arthritis [Unknown]
  - Dyslipidaemia [Unknown]
  - Hernia repair [Unknown]
  - Hyperparathyroidism secondary [Unknown]
  - Hypophagia [Unknown]
  - Fibromyalgia [Not Recovered/Not Resolved]
  - Impaired healing [Unknown]
  - Hypotension [Unknown]
  - Hiatus hernia [Unknown]
  - Rotator cuff syndrome [Unknown]
  - Osteoporosis [Unknown]
  - Breath sounds abnormal [Unknown]
  - External fixation of fracture [Unknown]
  - Thrombocytopenia [Not Recovered/Not Resolved]
  - Intervertebral disc degeneration [Unknown]
  - Large intestine polyp [Unknown]
  - Spinal osteoarthritis [Unknown]
  - Lumbar spinal stenosis [Unknown]
  - Epidural fibrosis [Unknown]
  - Anaemia [Unknown]
  - Facet joint syndrome [Unknown]
  - Staphylococcus test positive [Unknown]
  - Asthenia [Unknown]
  - Oesophageal stenosis [Unknown]
  - Diarrhoea [Unknown]
  - Blood calcium decreased [Unknown]
  - Arthralgia [Unknown]
  - Myalgia [Unknown]
  - Gastrooesophageal reflux disease [Unknown]
  - Diarrhoea [Not Recovered/Not Resolved]
  - Oedema peripheral [Unknown]
